FAERS Safety Report 4772034-9 (Version None)
Quarter: 2005Q3

REPORT INFORMATION
  Report Type: 
  Country: None (occurrence: None)
  Receive Date: 20050916
  Receipt Date: 20030721
  Transmission Date: 20060218
  Serious: Yes (Death)
  Sender: FDA-Public Use
  Company Number: US-ABBOTT-03P-163-0225941-00

PATIENT
  Age: 34 Year
  Sex: Male
  Weight: 64.014 kg

DRUGS (1)
  1. HYDROCODONE [Suspect]
     Dates: end: 20020101

REACTIONS (2)
  - DRUG LEVEL INCREASED [None]
  - DRUG TOXICITY [None]
